FAERS Safety Report 13768288 (Version 1)
Quarter: 2017Q3

REPORT INFORMATION
  Report Type: Spontaneous
  Country: SA (occurrence: SA)
  Receive Date: 20170719
  Receipt Date: 20170719
  Transmission Date: 20171127
  Serious: Yes (Other)
  Sender: FDA-Public Use
  Company Number: SA-FRESENIUS KABI-FK201706079

PATIENT
  Age: 11 Year
  Sex: Male

DRUGS (5)
  1. METHOTREXATE (MANUFACTURER UNKNOWN) [Suspect]
     Active Substance: METHOTREXATE
     Indication: B-CELL LYMPHOMA
     Route: 065
  2. VINCRISTINE [Suspect]
     Active Substance: VINCRISTINE
     Indication: B-CELL LYMPHOMA
     Route: 065
  3. CYCLOPHOSPHAMIDE. [Suspect]
     Active Substance: CYCLOPHOSPHAMIDE
     Indication: B-CELL LYMPHOMA
     Route: 065
  4. PREDNISOLONE. [Suspect]
     Active Substance: PREDNISOLONE
     Indication: B-CELL LYMPHOMA
     Route: 065
  5. DOXORUBICIN (MANUFACTURER UNKNOWN) [Suspect]
     Active Substance: DOXORUBICIN
     Indication: B-CELL LYMPHOMA
     Route: 065

REACTIONS (10)
  - Depression [Recovered/Resolved]
  - Endocarditis bacterial [Recovered/Resolved]
  - Cholestasis [Recovered/Resolved]
  - Hepatotoxicity [Recovered/Resolved]
  - Skin toxicity [Recovered/Resolved]
  - Bone marrow toxicity [Recovering/Resolving]
  - Colitis [Recovered/Resolved]
  - Affect lability [Recovered/Resolved]
  - Mucosal toxicity [Recovered/Resolved]
  - Febrile neutropenia [Recovered/Resolved]
